FAERS Safety Report 7127222-3 (Version None)
Quarter: 2010Q4

REPORT INFORMATION
  Report Type: 
  Country: None (occurrence: None)
  Receive Date: 20101129
  Receipt Date: 20100322
  Transmission Date: 20110411
  Serious: Yes (Other)
  Sender: FDA-Public Use
  Company Number: US-PFIZER INC-2010037195

PATIENT
  Sex: Male
  Weight: 86.168 kg

DRUGS (2)
  1. VIAGRA [Suspect]
     Indication: ERECTILE DYSFUNCTION
     Dosage: UNK
     Route: 048
     Dates: start: 20070101
  2. ATIVAN [Concomitant]
     Dosage: UNK

REACTIONS (5)
  - ABDOMINAL DISCOMFORT [None]
  - HEADACHE [None]
  - INTRAOCULAR PRESSURE INCREASED [None]
  - MEMORY IMPAIRMENT [None]
  - VISION BLURRED [None]
